APPROVED DRUG PRODUCT: METHOTREXATE PRESERVATIVE FREE
Active Ingredient: METHOTREXATE SODIUM
Strength: EQ 500MG BASE/20ML (EQ 25MG BASE/ML) **Federal Register determination that product was not discontinued or withdrawn for safety or effectiveness reasons**
Dosage Form/Route: INJECTABLE;INJECTION
Application: N011719 | Product #013
Applicant: HOSPIRA INC
Approved: Apr 13, 2005 | RLD: Yes | RS: No | Type: DISCN